APPROVED DRUG PRODUCT: SILODOSIN
Active Ingredient: SILODOSIN
Strength: 4MG
Dosage Form/Route: CAPSULE;ORAL
Application: A210396 | Product #001
Applicant: TORRENT PHARMACEUTICALS LTD
Approved: Feb 10, 2025 | RLD: No | RS: No | Type: DISCN